FAERS Safety Report 8465449-9 (Version None)
Quarter: 2012Q2

REPORT INFORMATION
  Report Type: 
  Country: None (occurrence: None)
  Receive Date: 20120323
  Receipt Date: 20111017
  Transmission Date: 20120825
  Serious: Yes (Hospitalization, Other)
  Sender: FDA-Public Use
  Company Number: 163-21880-11093327

PATIENT
  Age: 73 Year
  Sex: Male

DRUGS (1)
  1. REVLIMID [Suspect]
     Indication: MULTIPLE MYELOMA
     Dosage: 10 MG, QD DAYS 1-14, PO
     Route: 048
     Dates: start: 20101101, end: 20110923

REACTIONS (3)
  - DISEASE PROGRESSION [None]
  - PYREXIA [None]
  - RENAL FAILURE [None]
